FAERS Safety Report 23099440 (Version 1)
Quarter: 2023Q4

REPORT INFORMATION
  Report Type: Spontaneous
  Country: DE (occurrence: DE)
  Receive Date: 20231024
  Receipt Date: 20231024
  Transmission Date: 20240110
  Serious: Yes (Disabling)
  Sender: FDA-Public Use
  Company Number: DE-UCBSA-2023030212

PATIENT
  Age: 75 Year
  Sex: Female
  Weight: 76 kg

DRUGS (1)
  1. EVENITY [Suspect]
     Active Substance: ROMOSOZUMAB-AQQG
     Indication: Osteoporosis
     Dosage: 210 MILLIGRAM (2X 105 MG), MONTHLY (QM)
     Route: 065
     Dates: start: 20230329

REACTIONS (3)
  - Tinnitus [Not Recovered/Not Resolved]
  - Arthralgia [Recovering/Resolving]
  - Sinusitis [Not Recovered/Not Resolved]

NARRATIVE: CASE EVENT DATE: 20230522
